FAERS Safety Report 23237736 (Version 2)
Quarter: 2023Q4

REPORT INFORMATION
  Report Type: Spontaneous
  Country: ES (occurrence: US)
  Receive Date: 20231128
  Receipt Date: 20231212
  Transmission Date: 20240109
  Serious: Yes (Other)
  Sender: FDA-Public Use
  Company Number: ES-JAZZ PHARMACEUTICALS-2023-ES-023672

PATIENT

DRUGS (7)
  1. CANNABIDIOL [Suspect]
     Active Substance: CANNABIDIOL
     Indication: Lennox-Gastaut syndrome
     Dosage: 5 MILLIGRAM/KILOGRAM, BID
     Route: 048
     Dates: start: 20210804
  2. CANNABIDIOL [Suspect]
     Active Substance: CANNABIDIOL
     Dosage: 5.9 MG/KG/DAY
  3. CANNABIDIOL [Suspect]
     Active Substance: CANNABIDIOL
     Dosage: 5.1 MILLIGRAM/KILOGRAM, QD
  4. CANNABIDIOL [Suspect]
     Active Substance: CANNABIDIOL
     Dosage: 5.7 MILLIGRAM/KILOGRAM, QD
  5. LEVETIRACETAM [Concomitant]
     Active Substance: LEVETIRACETAM
     Indication: Product used for unknown indication
     Dosage: 550 MILLIGRAM, BID, 39.3 MG/KG/DAY)
  6. CLONAZEPAM [Concomitant]
     Active Substance: CLONAZEPAM
     Indication: Product used for unknown indication
     Dosage: 0.05 MILLIGRAM/KILOGRAM/DAY, 0.4-0.4-0.6 MG
  7. ZONISAMIDE [Concomitant]
     Active Substance: ZONISAMIDE
     Indication: Product used for unknown indication
     Dosage: 125 MILLIGRAM, BID, (8.9 MG/KG/DAY)

REACTIONS (2)
  - Generalised tonic-clonic seizure [Recovered/Resolved]
  - Myoclonic epilepsy [Recovered/Resolved]

NARRATIVE: CASE EVENT DATE: 20231010
